FAERS Safety Report 5698622-3 (Version None)
Quarter: 2008Q2

REPORT INFORMATION
  Report Type: 
  Country: None (occurrence: None)
  Receive Date: 20080408
  Receipt Date: 20061027
  Transmission Date: 20081010
  Serious: No
  Sender: FDA-Public Use
  Company Number: US-BAYER-US-2006-033352

PATIENT
  Age: 60 Year
  Sex: Female
  Weight: 63 kg

DRUGS (6)
  1. CLIMARA [Suspect]
     Indication: MENOPAUSAL SYMPTOMS
     Route: 062
     Dates: start: 19960101, end: 20060701
  2. CLIMARA [Suspect]
     Route: 062
     Dates: start: 20060701, end: 20060801
  3. CLIMARA [Suspect]
     Route: 062
     Dates: start: 20060801, end: 20061020
  4. CLIMARA [Suspect]
     Route: 062
     Dates: start: 20061020
  5. SYNTHROID [Concomitant]
     Dates: start: 19860101
  6. IMURAN [Concomitant]
     Indication: IMMUNE SYSTEM DISORDER
     Route: 048
     Dates: start: 20010101

REACTIONS (5)
  - HOT FLUSH [None]
  - PALPITATIONS [None]
  - PERIARTHRITIS [None]
  - PHARMACEUTICAL PRODUCT COMPLAINT [None]
  - STRESS [None]
